FAERS Safety Report 21028361 (Version 1)
Quarter: 2022Q2

REPORT INFORMATION
  Report Type: Report from Study
  Country: US (occurrence: US)
  Receive Date: 20220630
  Receipt Date: 20220630
  Transmission Date: 20220721
  Serious: Yes (Hospitalization)
  Sender: FDA-Public Use
  Company Number: US-BRISTOL-MYERS SQUIBB COMPANY-2022-063050

PATIENT
  Age: 65 Year
  Sex: Male
  Weight: 99.8 kg

DRUGS (2)
  1. IPILIMUMAB [Suspect]
     Active Substance: IPILIMUMAB
     Indication: Non-small cell lung cancer
     Dosage: 1 MG/KG
     Route: 042
     Dates: start: 20220525
  2. NIVOLUMAB [Suspect]
     Active Substance: NIVOLUMAB
     Indication: Non-small cell lung cancer
     Dosage: 3 MG/KG
     Route: 042
     Dates: start: 20220608

REACTIONS (1)
  - Blood creatine abnormal [Unknown]

NARRATIVE: CASE EVENT DATE: 20220621
